FAERS Safety Report 6787827-6 (Version None)
Quarter: 2010Q2

REPORT INFORMATION
  Report Type: 
  Country: None (occurrence: None)
  Receive Date: 20100623
  Receipt Date: 20070905
  Transmission Date: 20101027
  Serious: Yes (Other)
  Sender: FDA-Public Use
  Company Number: US-PFIZER INC-2007060983

PATIENT
  Sex: Female
  Weight: 77 kg

DRUGS (8)
  1. DEPO-SUBQ PROVERA 104 [Suspect]
     Indication: CONTRACEPTION
     Route: 058
     Dates: start: 20051128, end: 20051128
  2. DEPO-SUBQ PROVERA 104 [Suspect]
     Route: 058
     Dates: start: 20060220, end: 20060220
  3. DEPO-SUBQ PROVERA 104 [Suspect]
     Route: 058
     Dates: start: 20060517, end: 20060517
  4. DEPO-SUBQ PROVERA 104 [Suspect]
     Route: 058
     Dates: start: 20060810, end: 20060810
  5. DEPO-SUBQ PROVERA 104 [Suspect]
     Route: 058
     Dates: start: 20061102, end: 20061102
  6. DEPO-SUBQ PROVERA 104 [Suspect]
     Route: 058
     Dates: start: 20070125, end: 20070125
  7. DEPO-SUBQ PROVERA 104 [Suspect]
     Route: 058
     Dates: start: 20070430, end: 20070430
  8. DEPO-SUBQ PROVERA 104 [Suspect]
     Dosage: MOST RECENT INJECTION
     Route: 058
     Dates: start: 20070723, end: 20070723

REACTIONS (1)
  - INJECTION SITE REACTION [None]
